FAERS Safety Report 9382384 (Version 1)
Quarter: 2013Q3

REPORT INFORMATION
  Report Type: Report from Study
  Country: AU (occurrence: AU)
  Receive Date: 20130703
  Receipt Date: 20130703
  Transmission Date: 20140515
  Serious: Yes (Hospitalization, Other)
  Sender: FDA-Public Use
  Company Number: PHHY2013AU069098

PATIENT
  Age: 35 Year
  Sex: Female

DRUGS (1)
  1. ACLASTA [Suspect]
     Dosage: 5 MG, UNK
     Route: 042
     Dates: start: 20120615

REACTIONS (6)
  - Spinal compression fracture [Recovered/Resolved]
  - Back pain [Recovered/Resolved]
  - Foot fracture [Recovered/Resolved]
  - Ligament sprain [Recovered/Resolved]
  - Gastroenteritis viral [Recovered/Resolved]
  - Hypoaesthesia [Recovered/Resolved]
